FAERS Safety Report 21380961 (Version 1)
Quarter: 2022Q3

REPORT INFORMATION
  Report Type: Spontaneous
  Country: VN (occurrence: VN)
  Receive Date: 20220927
  Receipt Date: 20220927
  Transmission Date: 20221027
  Serious: Yes (Other)
  Sender: FDA-Public Use
  Company Number: VN-ELI_LILLY_AND_COMPANY-VN202209010485

PATIENT
  Age: 44 Year
  Sex: Male
  Weight: 66 kg

DRUGS (2)
  1. ALIMTA [Suspect]
     Active Substance: PEMETREXED DISODIUM
     Indication: Non-small cell lung cancer
     Dosage: 500 MG/M2, OTHER (ON DAY 1)
     Route: 042
     Dates: start: 202203
  2. CISPLATIN [Concomitant]
     Active Substance: CISPLATIN
     Indication: Non-small cell lung cancer
     Dosage: 75 MG/M2, OTHER (ON DAY 1)
     Route: 042
     Dates: start: 202203

REACTIONS (3)
  - Lymph nodes scan abnormal [Unknown]
  - Malignant neoplasm progression [Unknown]
  - Therapy partial responder [Unknown]
